FAERS Safety Report 8595599-8 (Version None)
Quarter: 2012Q3

REPORT INFORMATION
  Report Type: 
  Country: None (occurrence: None)
  Receive Date: 20120815
  Receipt Date: 20120803
  Transmission Date: 20120928
  Serious: No
  Sender: FDA-Public Use
  Company Number: US-ASTRAZENECA-2012SE55114

PATIENT
  Age: 47 Year
  Sex: Male
  Weight: 79.4 kg

DRUGS (3)
  1. ATACAND [Suspect]
     Indication: HYPERTENSION
     Route: 048
  2. ATACAND [Suspect]
     Route: 048
  3. ATACAND [Suspect]
     Route: 048
     Dates: start: 20090101

REACTIONS (4)
  - ADVERSE EVENT [None]
  - BLOOD PRESSURE INCREASED [None]
  - DISCOMFORT [None]
  - NECK DEFORMITY [None]
